FAERS Safety Report 8432199-4 (Version None)
Quarter: 2012Q2

REPORT INFORMATION
  Report Type: 
  Country: None (occurrence: None)
  Receive Date: 20120607
  Receipt Date: 20120525
  Transmission Date: 20120825
  Serious: Yes (Life-Threatening, Hospitalization)
  Sender: FDA-Public Use
  Company Number: IT-008568

PATIENT
  Age: 50 Year
  Sex: Male

DRUGS (2)
  1. DESMOPRESSIN ACETATE [Suspect]
     Indication: DIABETES INSIPIDUS
     Dosage: 240 UG
  2. KETOPROFEN [Suspect]
     Indication: PRODUCT USED FOR UNKNOWN INDICATION
     Dosage: 200 MG

REACTIONS (8)
  - WATER INTOXICATION [None]
  - RHABDOMYOLYSIS [None]
  - LACTIC ACIDOSIS [None]
  - VOMITING [None]
  - GRAND MAL CONVULSION [None]
  - HYPONATRAEMIA [None]
  - COMA [None]
  - ASTHENIA [None]
